FAERS Safety Report 4972344-6 (Version None)
Quarter: 2006Q1

REPORT INFORMATION
  Report Type: 
  Country: None (occurrence: None)
  Receive Date: 20060215
  Receipt Date: 20051108
  Transmission Date: 20060701
  Serious: No
  Sender: FDA-Public Use
  Company Number: US200511000248

PATIENT
  Age: 55 Year
  Sex: Male

DRUGS (1)
  1. CIALIS [Suspect]
     Dosage: 20 MG,; 10 MG

REACTIONS (3)
  - DYSPEPSIA [None]
  - FLATULENCE [None]
  - REFLUX OESOPHAGITIS [None]
